FAERS Safety Report 16820790 (Version 1)
Quarter: 2019Q3

REPORT INFORMATION
  Report Type: Spontaneous
  Country: ES (occurrence: ES)
  Receive Date: 20190918
  Receipt Date: 20190918
  Transmission Date: 20191005
  Serious: Yes (Hospitalization)
  Sender: FDA-Public Use
  Company Number: ES-TEVA-2019-ES-1107561

PATIENT
  Age: 89 Year
  Sex: Female

DRUGS (9)
  1. AMOROLFINA (7013A) [Concomitant]
  2. PANTOPRAZOL (7275A) [Concomitant]
     Active Substance: PANTOPRAZOLE
  3. ENALAPRIL 5 MG COMPRIMIDO [Concomitant]
  4. CLOPIDOGREL [Concomitant]
     Active Substance: CLOPIDOGREL BISULFATE
  5. BISOPROLOL 2,5 MG COMPRIMIDO [Suspect]
     Active Substance: BISOPROLOL
     Indication: HYPERTENSION
     Route: 048
     Dates: start: 20140114, end: 20190730
  6. FUROSEMIDA 40 MG COMPRIMIDO [Concomitant]
     Active Substance: FUROSEMIDE
  7. PARACETAMOL (12A) [Concomitant]
     Active Substance: ACETAMINOPHEN
  8. SIMVASTATINA 20 MG COMPRIMIDO [Concomitant]
     Active Substance: SIMVASTATIN
  9. LORAZEPAM 1 MG COMPRIMIDO [Concomitant]

REACTIONS (1)
  - Atrioventricular block [Recovered/Resolved]

NARRATIVE: CASE EVENT DATE: 20190826
